FAERS Safety Report 13805797 (Version 2)
Quarter: 2017Q3

REPORT INFORMATION
  Report Type: Spontaneous
  Country: US (occurrence: US)
  Receive Date: 20170728
  Receipt Date: 20170901
  Transmission Date: 20171127
  Serious: Yes (Other)
  Sender: FDA-Public Use
  Company Number: US-PFIZER INC-2017326468

PATIENT
  Age: 61 Year
  Sex: Male
  Weight: 94.35 kg

DRUGS (17)
  1. DEXAMETHASONE. [Suspect]
     Active Substance: DEXAMETHASONE
     Indication: NEUROPATHY PERIPHERAL
     Dosage: 20 MG, UNK (5 TABLETS 4MG EACH WHICH IS 20 MG BY MOUTH EVERY OTHER MONDAY)
     Route: 048
     Dates: start: 2015
  2. VELCADE [Suspect]
     Active Substance: BORTEZOMIB
     Dosage: UNK (1 IN 2 WK)
  3. CYANOCOBALAMIN. [Concomitant]
     Active Substance: CYANOCOBALAMIN
     Indication: VITAMIN SUPPLEMENTATION
  4. LYRICA [Suspect]
     Active Substance: PREGABALIN
     Indication: NEUROPATHY PERIPHERAL
     Dosage: 50 MG, 2X/DAY (50 MG,2 IN 1 D)
     Route: 048
     Dates: start: 201705
  5. CYCLOPHOSPHAMIDE. [Suspect]
     Active Substance: CYCLOPHOSPHAMIDE
     Indication: NEUROPATHY PERIPHERAL
     Dates: start: 2015
  6. SPIRONOLACTONE. [Concomitant]
     Active Substance: SPIRONOLACTONE
     Indication: DIURETIC THERAPY
     Dosage: 25 MG, 1X/DAY
     Route: 048
  7. FENOFIBRATE. [Concomitant]
     Active Substance: FENOFIBRATE
     Indication: BLOOD TRIGLYCERIDES DECREASED
     Dosage: 160 MG, 1X/DAY
     Route: 048
  8. LYRICA [Suspect]
     Active Substance: PREGABALIN
     Dosage: 75 MG, 2X/DAY (75 MG,2 IN 1 D)
     Route: 048
     Dates: start: 201706
  9. ZANTAC [Concomitant]
     Active Substance: RANITIDINE HYDROCHLORIDE
     Indication: GASTROOESOPHAGEAL REFLUX DISEASE
     Dosage: 150 MG, 1X/DAY
     Route: 048
  10. GABAPENTIN. [Suspect]
     Active Substance: GABAPENTIN
     Indication: NEUROPATHY PERIPHERAL
     Dosage: 1500 MG, DAILY (600 MG IN THE MORNING, 600 MG IN THE EVENING, 300 MG BEFORE BEDTIME)
  11. ACYCLOVIR. [Concomitant]
     Active Substance: ACYCLOVIR
     Dosage: 800 MG, DAILY
     Route: 048
     Dates: start: 2015
  12. FENOFIBRATE. [Concomitant]
     Active Substance: FENOFIBRATE
     Indication: BLOOD TRIGLYCERIDES INCREASED
  13. BORTEZOMIB [Suspect]
     Active Substance: BORTEZOMIB
     Dosage: UNK
     Dates: start: 2015
  14. VELCADE [Suspect]
     Active Substance: BORTEZOMIB
     Indication: NEUROPATHY PERIPHERAL
     Dosage: UNK UNK, WEEKLY (SHOT IN STOMACH, 1 IN 1 WK)
     Dates: start: 2015
  15. ACYCLOVIR. [Concomitant]
     Active Substance: ACYCLOVIR
     Indication: ANTIVIRAL TREATMENT
     Dosage: 400 MG, 2X/DAY
     Route: 048
     Dates: start: 2015
  16. CYANOCOBALAMIN. [Concomitant]
     Active Substance: CYANOCOBALAMIN
     Indication: ANAEMIA VITAMIN B12 DEFICIENCY
     Dosage: 1000 MG, MONTHLY (1000 MG INJECTION ONCE A MONTH)
  17. HYDROCHLOROTHIAZIDE. [Concomitant]
     Active Substance: HYDROCHLOROTHIAZIDE
     Indication: BLOOD PRESSURE ABNORMAL
     Dosage: 25 MG, 1X/DAY
     Route: 048

REACTIONS (3)
  - Papilloedema [Unknown]
  - Memory impairment [Not Recovered/Not Resolved]
  - Drug ineffective for unapproved indication [Not Recovered/Not Resolved]

NARRATIVE: CASE EVENT DATE: 2015
